FAERS Safety Report 18741304 (Version 1)
Quarter: 2021Q1

REPORT INFORMATION
  Report Type: Spontaneous
  Country: US (occurrence: US)
  Receive Date: 20210114
  Receipt Date: 20210114
  Transmission Date: 20210419
  Serious: Yes (Death)
  Sender: FDA-Public Use
  Company Number: US-PFIZER INC-2021003197

PATIENT
  Age: 72 Year
  Sex: Female

DRUGS (9)
  1. ARICEPT [Suspect]
     Active Substance: DONEPEZIL HYDROCHLORIDE
     Route: 048
  2. ATORVASTATIN CALCIUM. [Suspect]
     Active Substance: ATORVASTATIN CALCIUM
     Route: 048
  3. ATENOLOL. [Suspect]
     Active Substance: ATENOLOL
     Route: 048
  4. BUPROPION. [Suspect]
     Active Substance: BUPROPION
     Route: 048
  5. TRAZODONE [Suspect]
     Active Substance: TRAZODONE HYDROCHLORIDE
     Route: 048
  6. HYDROCODONE BITARTRATE AND ACETAMINOPHEN [Suspect]
     Active Substance: ACETAMINOPHEN\HYDROCODONE BITARTRATE
     Route: 048
  7. BENAZEPRIL [Suspect]
     Active Substance: BENAZEPRIL HYDROCHLORIDE
     Route: 048
  8. CLARITIN [Suspect]
     Active Substance: LORATADINE
     Route: 048
  9. TRAMADOL. [Suspect]
     Active Substance: TRAMADOL
     Route: 048

REACTIONS (1)
  - Completed suicide [Fatal]
